FAERS Safety Report 4370067-8 (Version None)
Quarter: 2004Q2

REPORT INFORMATION
  Report Type: 
  Country: None (occurrence: None)
  Receive Date: 20040527
  Receipt Date: 20040514
  Transmission Date: 20050107
  Serious: Yes (Death, Hospitalization)
  Sender: FDA-Public Use
  Company Number: GB-JNJFOC-20040503463

PATIENT
  Age: 51 Year
  Sex: Female

DRUGS (2)
  1. REMICADE [Suspect]
     Indication: RHEUMATOID ARTHRITIS
     Dosage: 12 DOSES
     Dates: start: 20010101, end: 20010101
  2. ENBREL [Suspect]
     Indication: RHEUMATOID ARTHRITIS
     Dosage: SUBCUTANEOUS
     Route: 058

REACTIONS (7)
  - ABDOMINAL NEOPLASM [None]
  - ANAEMIA [None]
  - DRUG INTERACTION [None]
  - HODGKIN'S DISEASE [None]
  - INFECTION [None]
  - T-CELL LYMPHOMA [None]
  - THROMBOCYTOPENIA [None]
